FAERS Safety Report 9735890 (Version 2)
Quarter: 2013Q4

REPORT INFORMATION
  Report Type: Spontaneous
  Country: US (occurrence: US)
  Receive Date: 20131206
  Receipt Date: 20131206
  Transmission Date: 20140711
  Serious: No
  Sender: FDA-Public Use
  Company Number: US-GILEAD-2009-0023173

PATIENT
  Sex: Female

DRUGS (10)
  1. LETAIRIS [Suspect]
     Indication: PULMONARY ARTERIAL HYPERTENSION
     Route: 048
     Dates: start: 20090530
  2. REVATIO [Concomitant]
  3. FUROSEMIDE [Concomitant]
     Route: 048
  4. KLOR-CON [Concomitant]
  5. HYDROCODONE W/ ACETAMINOPHEN [Concomitant]
  6. HYDROCODONE W/ ACETAMINOPHEN [Concomitant]
     Route: 048
  7. CENESTIN [Concomitant]
  8. METOCLOPRAMIDE [Concomitant]
  9. NEXIUM [Concomitant]
  10. VITAMIN D [Concomitant]

REACTIONS (4)
  - Nausea [Unknown]
  - Headache [Unknown]
  - Local swelling [Unknown]
  - Fluid retention [Unknown]
